FAERS Safety Report 20002736 (Version 2)
Quarter: 2021Q4

REPORT INFORMATION
  Report Type: Report from Study
  Country: None (occurrence: US)
  Receive Date: 20211028
  Receipt Date: 20211029
  Transmission Date: 20220303
  Serious: Yes (Other)
  Sender: FDA-Public Use
  Company Number: US-ABBVIE-21K-163-4136962-00

PATIENT
  Sex: Male

DRUGS (2)
  1. IMBRUVICA [Suspect]
     Active Substance: IBRUTINIB
     Indication: Chronic lymphocytic leukaemia
     Route: 048
     Dates: start: 20210109, end: 2021
  2. IMBRUVICA [Suspect]
     Active Substance: IBRUTINIB
     Dosage: MISSED DOSES FOR 5 DAYS
     Route: 048
     Dates: start: 2021

REACTIONS (1)
  - Polyp [Unknown]

NARRATIVE: CASE EVENT DATE: 20210101
